FAERS Safety Report 22043977 (Version 1)
Quarter: 2023Q1

REPORT INFORMATION
  Report Type: Spontaneous
  Country: US (occurrence: US)
  Receive Date: 20230228
  Receipt Date: 20230228
  Transmission Date: 20230418
  Serious: Yes (Other)
  Sender: FDA-Public Use
  Company Number: US-NOVEN PHARMACEUTICALS, INC.-2022-NOV-US000903

PATIENT
  Age: 11 Year
  Sex: Female

DRUGS (3)
  1. DAYTRANA [Suspect]
     Active Substance: METHYLPHENIDATE
     Indication: Anxiety
     Dosage: 10 MG/9 HOURS
     Route: 062
     Dates: start: 20220927
  2. DAYTRANA [Suspect]
     Active Substance: METHYLPHENIDATE
     Indication: Disturbance in attention
  3. DAYTRANA [Suspect]
     Active Substance: METHYLPHENIDATE
     Indication: Off label use

REACTIONS (5)
  - Device adhesion issue [Not Recovered/Not Resolved]
  - Device difficult to use [Not Recovered/Not Resolved]
  - Product administration error [Not Recovered/Not Resolved]
  - Off label use [Not Recovered/Not Resolved]
  - No adverse event [Unknown]

NARRATIVE: CASE EVENT DATE: 20220927
